FAERS Safety Report 22218696 (Version 1)
Quarter: 2023Q2

REPORT INFORMATION
  Report Type: Spontaneous
  Country: US (occurrence: None)
  Receive Date: 20230415
  Receipt Date: 20230415
  Transmission Date: 20230722
  Serious: Yes (Hospitalization, Disabling)
  Sender: FDA-Public Use
  Company Number: None

PATIENT
  Age: 66 Year
  Sex: Male
  Weight: 67.5 kg

DRUGS (4)
  1. POLYETHYLENE GLYCOL (3350) [Suspect]
     Active Substance: POLYETHYLENE GLYCOL 3350
     Indication: Constipation
     Dosage: OTHER QUANTITY : 30 17 GRAMS.1 CAPFUL;?FREQUENCY : DAILY;?
     Route: 048
     Dates: start: 20230412, end: 20230412
  2. SERTRALINE [Concomitant]
  3. REQUIP [Concomitant]
     Active Substance: ROPINIROLE HYDROCHLORIDE
  4. VITAMIN D [Concomitant]
     Active Substance: VITAMIN D NOS

REACTIONS (7)
  - Flushing [None]
  - Pruritus [None]
  - Pruritus [None]
  - Chills [None]
  - Tremor [None]
  - Disorientation [None]
  - Hypersensitivity [None]

NARRATIVE: CASE EVENT DATE: 20230412
